FAERS Safety Report 7337626-1 (Version None)
Quarter: 2011Q1

REPORT INFORMATION
  Report Type: 
  Country: None (occurrence: None)
  Receive Date: 20110308
  Receipt Date: 20100913
  Transmission Date: 20110831
  Serious: Yes (Other)
  Sender: FDA-Public Use
  Company Number: US-BAYER-201029432NA

PATIENT
  Sex: Female
  Weight: 60 kg

DRUGS (5)
  1. YASMIN [Suspect]
     Dosage: UNK
     Dates: start: 20010601, end: 20050101
  2. CHLOROQUINE PHOSPHATE [Concomitant]
     Dosage: 500 MG, UNK
     Route: 048
  3. NSAID'S [Concomitant]
  4. YASMIN [Suspect]
     Indication: CONTRACEPTION
     Dosage: UNK UNK, UNK
     Route: 048
     Dates: start: 20070101, end: 20071215
  5. MIGRAINE [Concomitant]
     Dosage: UNK
     Dates: start: 20050101

REACTIONS (4)
  - GALLBLADDER CHOLESTEROLOSIS [None]
  - ABDOMINAL PAIN [None]
  - CHOLELITHIASIS [None]
  - CHOLECYSTITIS CHRONIC [None]
